FAERS Safety Report 4801369-6 (Version None)
Quarter: 2005Q4

REPORT INFORMATION
  Report Type: 
  Country: None (occurrence: None)
  Receive Date: 20051012
  Receipt Date: 20050921
  Transmission Date: 20060501
  Serious: Yes (Disabling)
  Sender: FDA-Public Use
  Company Number: 2005-CZ-00181

PATIENT
  Age: 19 Year
  Sex: Female

DRUGS (4)
  1. FLUOXETINE [Suspect]
     Indication: DEPRESSION
     Dosage: 20 MG, ORAL
     Route: 048
     Dates: start: 20040825, end: 20050902
  2. FLUCONAZOLE [Suspect]
     Indication: CANDIDIASIS
     Dosage: 150 , ORAL
     Route: 048
     Dates: start: 20050825
  3. EUGYNON/00022701/ [Concomitant]
  4. CHLORAMPHENICOL [Concomitant]

REACTIONS (1)
  - CONVULSION [None]
